FAERS Safety Report 10195482 (Version 2)
Quarter: 2014Q2

REPORT INFORMATION
  Report Type: Spontaneous
  Country: MX (occurrence: MX)
  Receive Date: 20140526
  Receipt Date: 20140526
  Transmission Date: 20141212
  Serious: Yes (Other)
  Sender: FDA-Public Use
  Company Number: MX-ELI_LILLY_AND_COMPANY-MX201308001273

PATIENT
  Age: 35 Year
  Sex: Female

DRUGS (2)
  1. HUMULIN 70/30 [Suspect]
     Indication: DIABETES MELLITUS
     Dosage: 25 IU, EACH MORNING
     Route: 065
     Dates: start: 201308
  2. HUMULIN 70/30 [Suspect]
     Dosage: 15 IU, EACH EVENING
     Route: 065
     Dates: start: 201308

REACTIONS (4)
  - Pre-eclampsia [Recovered/Resolved]
  - Placental disorder [Recovered/Resolved]
  - High risk pregnancy [Recovered/Resolved]
  - Maternal exposure during pregnancy [Not Recovered/Not Resolved]
